FAERS Safety Report 23440708 (Version 1)
Quarter: 2024Q1

REPORT INFORMATION
  Report Type: Spontaneous
  Country: US (occurrence: US)
  Receive Date: 20240125
  Receipt Date: 20240125
  Transmission Date: 20240409
  Serious: Yes (Other)
  Sender: FDA-Public Use
  Company Number: US-STRIDES ARCOLAB LIMITED-2023SP015354

PATIENT
  Age: 15 Year
  Sex: Female

DRUGS (10)
  1. DOXYCYCLINE [Suspect]
     Active Substance: DOXYCYCLINE
     Indication: Dermatitis acneiform
     Dosage: 100 MILLIGRAM, BID
     Route: 065
  2. DOXYCYCLINE [Suspect]
     Active Substance: DOXYCYCLINE
     Dosage: UNK, QD (DOSE REDUCED)
     Route: 065
  3. CARBOPLATIN [Suspect]
     Active Substance: CARBOPLATIN
     Indication: Posterior fossa syndrome
     Dosage: UNK
     Route: 065
  4. CARBOPLATIN [Suspect]
     Active Substance: CARBOPLATIN
     Indication: Astrocytoma
  5. TRAMETINIB [Concomitant]
     Active Substance: TRAMETINIB
     Indication: Posterior fossa syndrome
     Dosage: UNK
     Route: 065
  6. TRAMETINIB [Concomitant]
     Active Substance: TRAMETINIB
     Indication: Astrocytoma
  7. VINBLASTINE [Concomitant]
     Active Substance: VINBLASTINE
     Indication: Posterior fossa syndrome
     Dosage: UNK
     Route: 065
  8. VINBLASTINE [Concomitant]
     Active Substance: VINBLASTINE
     Indication: Astrocytoma
  9. VINCRISTINE [Concomitant]
     Active Substance: VINCRISTINE
     Indication: Posterior fossa syndrome
     Dosage: UNK
     Route: 065
  10. VINCRISTINE [Concomitant]
     Active Substance: VINCRISTINE
     Indication: Astrocytoma

REACTIONS (3)
  - Photosensitivity reaction [Recovered/Resolved]
  - Rash [Recovered/Resolved]
  - Off label use [Unknown]
